FAERS Safety Report 15163430 (Version 1)
Quarter: 2018Q3

REPORT INFORMATION
  Report Type: Spontaneous
  Country: CH (occurrence: CH)
  Receive Date: 20180719
  Receipt Date: 20180719
  Transmission Date: 20181010
  Serious: Yes (Hospitalization, Other)
  Sender: FDA-Public Use
  Company Number: CH-TEVA-2018-CH-926373

PATIENT
  Age: 48 Year
  Sex: Male

DRUGS (9)
  1. NIFEDIPINE. [Suspect]
     Active Substance: NIFEDIPINE
     Indication: HYPERTENSION
     Dosage: NIFEDIPINE RETARD (EXACT PRODUCT UNKNOWN) 20 MG ORAL ADMINISTRATION 1?0?0,
     Route: 048
     Dates: start: 201804, end: 20180606
  2. BURGERSTEIN TOP VITAL [Concomitant]
     Dosage: ORAL ADMINISTRATION SINCE UNKNOWN PERIOD OF TIME, CONTINUING
     Route: 048
  3. OMEGA 3 [Concomitant]
     Active Substance: OMEGA-3 FATTY ACIDS
     Dosage: OMEGA 3
     Route: 048
  4. MARCOUMAR [Concomitant]
     Active Substance: PHENPROCOUMON
     Dosage: MARCOUMAR (PHENPROCOUMON) DOSING ACCORDING TO INR: TARGET?INR 2.5 ? 3.5
     Route: 048
  5. VI?DE 3 [Concomitant]
     Active Substance: CHOLECALCIFEROL
     Dosage: DROPS 8?0?0?0 ORAL ADMINISTRATION SINCE UNKNOWN PERIOD OF TIME, CONTINUING
     Route: 048
  6. VITAMIN C [Concomitant]
     Active Substance: ASCORBIC ACID
     Dosage: 1 GRAM DAILY; ORAL ADMINISTRATION SINCE UNKNOWN PERIOD OF TIME, CONTINUING
     Route: 048
  7. AESCULUS (AESCULUS HIPPOCASTANUM) [Suspect]
     Active Substance: HORSE CHESTNUT
     Dosage: ALTERNATIVE MEDICINE PRODUCT WITH HORSE CHESTNUT EXTRACT
     Route: 042
     Dates: end: 20180606
  8. LOSARTAN MEPHA [Suspect]
     Active Substance: LOSARTAN POTASSIUM
     Indication: HYPERTENSION
     Dosage: LOSARTAN?MEPHA (LOSARTAN) (STRENGTH UNKNOWN) ??0?0?? ORAL ADMINISTRATION BEGINNING SUMMER 2018
     Route: 048
     Dates: start: 2018, end: 20180606
  9. SIMCORA [Concomitant]
     Active Substance: SIMVASTATIN
     Dosage: SIMCORA (SIMVASTATIN) 80 MG 1?0?0?0
     Route: 048

REACTIONS (8)
  - Neck pain [None]
  - Pyrexia [None]
  - Oropharyngeal pain [None]
  - Hepatitis [None]
  - International normalised ratio increased [None]
  - Histiocytosis haematophagic [None]
  - C-reactive protein increased [None]
  - Drug-induced liver injury [Recovering/Resolving]

NARRATIVE: CASE EVENT DATE: 20180607
